FAERS Safety Report 18266988 (Version 3)
Quarter: 2020Q4

REPORT INFORMATION
  Report Type: Spontaneous
  Country: DK (occurrence: DK)
  Receive Date: 20200915
  Receipt Date: 20201216
  Transmission Date: 20210113
  Serious: Yes (Other)
  Sender: FDA-Public Use
  Company Number: DK-REGENERON PHARMACEUTICALS, INC.-2020-76129

PATIENT

DRUGS (2)
  1. EYLEA [Suspect]
     Active Substance: AFLIBERCEPT
     Indication: NEOVASCULAR AGE-RELATED MACULAR DEGENERATION
     Dosage: UNK
  2. EYLEA [Suspect]
     Active Substance: AFLIBERCEPT
     Dosage: 1 DF, ONCE, OS; LAST DOSE PRIOR TO THE EVENT ; TOTAL OF DOSES: 17
     Route: 031
     Dates: start: 20200722, end: 20200722

REACTIONS (4)
  - Blindness [Unknown]
  - Vitritis [Recovering/Resolving]
  - Non-infectious endophthalmitis [Recovering/Resolving]
  - Lens capsulotomy [Unknown]

NARRATIVE: CASE EVENT DATE: 20200813
